FAERS Safety Report 6029899-2 (Version None)
Quarter: 2008Q4

REPORT INFORMATION
  Report Type: 
  Country: None (occurrence: None)
  Receive Date: 20081222
  Receipt Date: 20080909
  Transmission Date: 20090506
  Serious: Yes (Other)
  Sender: FDA-Public Use
  Company Number: US-WYE-H05947908

PATIENT
  Age: 29 Year
  Sex: Male
  Weight: 71.73 kg

DRUGS (2)
  1. PRISTIQ [Suspect]
     Indication: DEPRESSION
     Dosage: 50 MG 1X PER 1 DAY, ORAL
     Route: 048
     Dates: start: 20080708, end: 20080909
  2. BENADRYL [Concomitant]

REACTIONS (1)
  - PUPILLARY DISORDER [None]
